FAERS Safety Report 7960213-9 (Version None)
Quarter: 2011Q4

REPORT INFORMATION
  Report Type: 
  Country: None (occurrence: None)
  Receive Date: 20111206
  Receipt Date: 20111129
  Transmission Date: 20120403
  Serious: Yes (Hospitalization, Other)
  Sender: FDA-Public Use
  Company Number: US-ASTRAZENECA-2011SE54809

PATIENT
  Age: 65 Year
  Sex: Female

DRUGS (3)
  1. NEXIUM [Suspect]
     Route: 048
  2. ZANTAC [Concomitant]
  3. PRILOSEC [Suspect]
     Route: 048

REACTIONS (6)
  - BLOOD CALCIUM INCREASED [None]
  - THROAT CANCER [None]
  - OVARIAN CANCER [None]
  - DRUG DOSE OMISSION [None]
  - WEIGHT DECREASED [None]
  - VOMITING [None]
